FAERS Safety Report 8523975 (Version 3)
Quarter: 2013Q2

REPORT INFORMATION
  Report Type: Spontaneous
  Country: CN (occurrence: CN)
  Receive Date: 20120420
  Receipt Date: 20130529
  Transmission Date: 20140414
  Serious: Yes (Other)
  Sender: FDA-Public Use
  Company Number: CN-ASTRAZENECA-2012SE24649

PATIENT
  Age: 60 Year
  Sex: Male

DRUGS (1)
  1. SYMBICORT TURBUHALER [Suspect]
     Indication: ASTHMA
     Dosage: 1 MCG DAILY
     Route: 055
     Dates: start: 2010, end: 2010

REACTIONS (1)
  - Pneumonia [Recovered/Resolved]
